FAERS Safety Report 8877757 (Version 1)
Quarter: 2012Q4

REPORT INFORMATION
  Report Type: 
  Country: US (occurrence: US)
  Receive Date: 20121025
  Receipt Date: 20121025
  Transmission Date: 20130627
  Serious: No
  Sender: FDA-Public Use
  Company Number: US-AMGEN-USASP2012020168

PATIENT
  Age: 58 Year
  Sex: Female

DRUGS (3)
  1. ENBREL [Suspect]
     Indication: RHEUMATOID ARTHRITIS
     Dates: start: 20100419
  2. ENBREL [Suspect]
     Indication: PSORIATIC ARTHROPATHY
  3. ENBREL [Suspect]
     Indication: PSORIASIS

REACTIONS (5)
  - Rheumatoid arthritis [Recovered/Resolved]
  - Psoriatic arthropathy [Recovered/Resolved]
  - Psoriasis [Not Recovered/Not Resolved]
  - Sinusitis [Recovered/Resolved]
  - Laryngitis [Recovered/Resolved]
